FAERS Safety Report 4883641-7 (Version None)
Quarter: 2006Q1

REPORT INFORMATION
  Report Type: 
  Country: None (occurrence: None)
  Receive Date: 20060117
  Receipt Date: 20060117
  Transmission Date: 20060701
  Serious: Yes (Death)
  Sender: FDA-Public Use
  Company Number: None

PATIENT
  Age: 63 Year
  Sex: Male

DRUGS (3)
  1. GEMZAR [Suspect]
     Indication: PANCREATIC CARCINOMA
  2. XELODA [Suspect]
     Indication: PANCREATIC CARCINOMA
  3. TAXOTERE [Suspect]
     Indication: PANCREATIC CARCINOMA

REACTIONS (1)
  - DEATH [None]
